FAERS Safety Report 10142640 (Version 5)
Quarter: 2014Q2

REPORT INFORMATION
  Report Type: Spontaneous
  Country: US (occurrence: US)
  Receive Date: 20140430
  Receipt Date: 20140522
  Transmission Date: 20141212
  Serious: Yes (Other)
  Sender: FDA-Public Use
  Company Number: US-JNJFOC-20140417040

PATIENT
  Sex: 0

DRUGS (3)
  1. XARELTO [Suspect]
     Indication: PRODUCT USED FOR UNKNOWN INDICATION
     Route: 048
  2. AMIODARONE [Concomitant]
     Route: 065
  3. VERAPAMIL [Concomitant]
     Route: 065

REACTIONS (1)
  - Pulmonary haemorrhage [Recovered/Resolved]
